FAERS Safety Report 5107243-2 (Version None)
Quarter: 2006Q3

REPORT INFORMATION
  Report Type: 
  Country: None (occurrence: None)
  Receive Date: 20060913
  Receipt Date: 20060830
  Transmission Date: 20061208
  Serious: Yes (Hospitalization)
  Sender: FDA-Public Use
  Company Number: US018233

PATIENT
  Sex: Male

DRUGS (2)
  1. TRISENOX [Suspect]
     Indication: MYELODYSPLASTIC SYNDROME
     Dosage: 0.25 MG/KG TWICE WEEKLY Q72HR INTRAVENOUS DRIP
     Route: 041
     Dates: start: 20060101
  2. EXJADE [Suspect]
     Dates: start: 20060101

REACTIONS (3)
  - CARDIAC FAILURE CONGESTIVE [None]
  - FLUID OVERLOAD [None]
  - PNEUMONIA [None]
